FAERS Safety Report 22206640 (Version 1)
Quarter: 2023Q2

REPORT INFORMATION
  Report Type: Spontaneous
  Country: US (occurrence: None)
  Receive Date: 20230412
  Receipt Date: 20230412
  Transmission Date: 20230722
  Serious: Yes (Other)
  Sender: FDA-Public Use
  Company Number: None

PATIENT
  Age: 69 Year
  Sex: Female
  Weight: 57.6 kg

DRUGS (5)
  1. EPINEPHRINE\LIDOCAINE [Suspect]
     Active Substance: EPINEPHRINE\LIDOCAINE
     Indication: Local anaesthesia
     Dates: start: 20230330, end: 20230330
  2. anastrozole (1 mg) [Concomitant]
  3. trazodone (150 mg) [Concomitant]
  4. gabapentin (100 mg) [Concomitant]
  5. Calcium Vitamin D Multivitamin Ashwagandha [Concomitant]

REACTIONS (1)
  - Anal incontinence [None]

NARRATIVE: CASE EVENT DATE: 20230401
